FAERS Safety Report 4324864-5 (Version None)
Quarter: 2004Q1

REPORT INFORMATION
  Report Type: 
  Country: None (occurrence: None)
  Receive Date: 20040323
  Receipt Date: 20031114
  Transmission Date: 20041129
  Serious: No
  Sender: FDA-Public Use
  Company Number: M03-341-047

PATIENT
  Age: 76 Year
  Sex: Female
  Weight: 73 kg

DRUGS (6)
  1. VELCADE [Suspect]
     Indication: MULTIPLE MYELOMA
     Dosage: 2 MG BIW: INTRAVENOUS BOLUS
     Route: 040
     Dates: start: 20030711, end: 20030715
  2. EFFEXOR [Concomitant]
  3. METHADONE HCL [Concomitant]
  4. NEURONTIN [Concomitant]
  5. SPIRONOLACTONE [Concomitant]
  6. SYNTHROID [Concomitant]

REACTIONS (6)
  - ASTHENIA [None]
  - CONFUSIONAL STATE [None]
  - DISEASE PROGRESSION [None]
  - DRUG INTERACTION [None]
  - HALLUCINATION [None]
  - HERPES ZOSTER [None]
